FAERS Safety Report 16730587 (Version 1)
Quarter: 2019Q3

REPORT INFORMATION
  Report Type: Spontaneous
  Country: US (occurrence: US)
  Receive Date: 20190822
  Receipt Date: 20190822
  Transmission Date: 20191005
  Serious: No
  Sender: FDA-Public Use
  Company Number: US-JNJFOC-20190818539

PATIENT
  Sex: Male

DRUGS (2)
  1. PRIMIDONE. [Interacting]
     Active Substance: PRIMIDONE
     Indication: SEIZURE
     Route: 065
  2. XARELTO [Suspect]
     Active Substance: RIVAROXABAN
     Indication: CEREBROVASCULAR ACCIDENT
     Route: 048

REACTIONS (1)
  - Drug interaction [Unknown]
